FAERS Safety Report 4821462-1 (Version None)
Quarter: 2005Q4

REPORT INFORMATION
  Report Type: 
  Country: None (occurrence: None)
  Receive Date: 20051107
  Receipt Date: 20051025
  Transmission Date: 20060501
  Serious: Yes (Other)
  Sender: FDA-Public Use
  Company Number: PHBS2005GB16086

PATIENT
  Age: 56 Year
  Sex: Female

DRUGS (5)
  1. DICLOFENAC [Suspect]
     Indication: BACK PAIN
     Dosage: 300 MG/DAY
  2. SULFAMETHOXAZOLE + TRIMETHOPRIM [Suspect]
  3. TENOFOVIR [Suspect]
  4. ABACAVIR SULFATE [Suspect]
     Dosage: 300 MG, BID
  5. LOPINAVIR W/RITONAVIR [Suspect]
     Dosage: 3 DF, BID

REACTIONS (6)
  - BLOOD ALKALINE PHOSPHATASE INCREASED [None]
  - BLOOD BICARBONATE ABNORMAL [None]
  - BLOOD CREATININE INCREASED [None]
  - BLOOD PHOSPHORUS DECREASED [None]
  - OLIGURIA [None]
  - PROTEINURIA [None]
